FAERS Safety Report 21059290 (Version 7)
Quarter: 2022Q4

REPORT INFORMATION
  Report Type: Spontaneous
  Country: CZ (occurrence: CZ)
  Receive Date: 20220708
  Receipt Date: 20221130
  Transmission Date: 20230113
  Serious: Yes (Hospitalization, Other)
  Sender: FDA-Public Use
  Company Number: CZ-GLAXOSMITHKLINE-CZ2022EME097525

PATIENT
  Age: 68 Year
  Sex: Male

DRUGS (14)
  1. PAROXETINE [Interacting]
     Active Substance: PAROXETINE
     Indication: Depression
     Dosage: 20 MG, BID, 1-0-1,TABLET
     Route: 065
  2. PAROXETINE [Interacting]
     Active Substance: PAROXETINE
     Indication: Major depression
     Dosage: 20 MILLIGRAM, QD
     Route: 048
  3. PAROXETINE [Interacting]
     Active Substance: PAROXETINE
     Dosage: 40 MILLIGRAM
     Route: 065
  4. PERINDOPRIL [Interacting]
     Active Substance: PERINDOPRIL
     Indication: Major depression
     Dosage: 4 MG, BID, 1-0-1
     Route: 065
  5. PERINDOPRIL [Interacting]
     Active Substance: PERINDOPRIL
     Indication: Depression
     Dosage: 4 MILLIGRAM, QD
     Route: 048
  6. RISPERDAL [Interacting]
     Active Substance: RISPERIDONE
     Indication: Major depression
     Dosage: 1 MG, BID, 1-0-1
     Route: 065
  7. RISPERDAL [Interacting]
     Active Substance: RISPERIDONE
     Indication: Depression
     Dosage: 1 MILLIGRAM, QD
     Route: 048
  8. VORTIOXETINE [Suspect]
     Active Substance: VORTIOXETINE
     Indication: Depression
     Dosage: UNK
     Route: 065
  9. LACTULOSE [Concomitant]
     Active Substance: LACTULOSE
     Indication: Constipation
     Dosage: UNK
     Route: 065
  10. PREGABALIN [Concomitant]
     Active Substance: PREGABALIN
     Indication: Depression
     Dosage: 450MG,QD(150MG,TID,1-1-1(8HRS)
     Route: 065
  11. PREGABALIN [Concomitant]
     Active Substance: PREGABALIN
     Indication: Major depression
     Dosage: 150 MILLIGRAM, QD
     Route: 048
  12. PREGABALIN [Concomitant]
     Active Substance: PREGABALIN
     Dosage: 150 MG, 0.33 TIMES A DAY
     Route: 048
  13. ASPIRIN [Interacting]
     Active Substance: ASPIRIN
     Indication: Depression
     Dosage: 100 MG, 1D, TABLET
     Route: 048
  14. ASPIRIN [Interacting]
     Active Substance: ASPIRIN
     Indication: Major depression
     Dosage: 100 MG, DAILY, 0-1-0
     Route: 065

REACTIONS (13)
  - Constipation [Unknown]
  - Extrapyramidal disorder [Unknown]
  - Tremor [Not Recovered/Not Resolved]
  - Drug interaction [Unknown]
  - Labelled drug-drug interaction issue [Recovered/Resolved]
  - Drug ineffective [Unknown]
  - Bowel movement irregularity [Unknown]
  - Psychiatric decompensation [Unknown]
  - Dysarthria [Unknown]
  - Movement disorder [Unknown]
  - Drug level increased [Unknown]
  - Incorrect dose administered [Unknown]
  - Medication error [Unknown]
